FAERS Safety Report 5163809-5 (Version None)
Quarter: 2006Q4

REPORT INFORMATION
  Report Type: 
  Country: None (occurrence: None)
  Receive Date: 20061122
  Receipt Date: 20061104
  Transmission Date: 20070319
  Serious: Yes (Death)
  Sender: FDA-Public Use
  Company Number: 078

PATIENT
  Sex: Male

DRUGS (1)
  1. FAZACLO ODT [Suspect]
     Dosage: 6.25 MG PO DAILY
     Route: 048
     Dates: start: 20060921, end: 20061101

REACTIONS (1)
  - DEATH [None]
